FAERS Safety Report 24720520 (Version 2)
Quarter: 2025Q2

REPORT INFORMATION
  Report Type: Report from Study
  Country: GB (occurrence: GB)
  Receive Date: 20241211
  Receipt Date: 20250610
  Transmission Date: 20250716
  Serious: Yes (Death, Other)
  Sender: TAKEDA
  Company Number: GB-TAKEDA-2024TUS122057

PATIENT
  Sex: Male

DRUGS (2)
  1. VEDOLIZUMAB [Suspect]
     Active Substance: VEDOLIZUMAB
     Indication: Crohn^s disease
  2. VEDOLIZUMAB [Suspect]
     Active Substance: VEDOLIZUMAB

REACTIONS (5)
  - Death [Fatal]
  - Thrombosis [Unknown]
  - Anal neoplasm [Unknown]
  - Lower respiratory tract infection [Unknown]
  - Infection [Unknown]
